FAERS Safety Report 26107006 (Version 1)
Quarter: 2025Q4

REPORT INFORMATION
  Report Type: Spontaneous
  Country: EU (occurrence: EU)
  Receive Date: 20251201
  Receipt Date: 20251201
  Transmission Date: 20260117
  Serious: Yes (Other)
  Sender: AUROBINDO
  Company Number: EU-AUROBINDO-AUR-APL-2025-060219

PATIENT
  Age: 17 Year
  Sex: Female

DRUGS (23)
  1. IRINOTECAN [Suspect]
     Active Substance: IRINOTECAN
     Indication: Metastases to lymph nodes
     Dosage: UNK
     Route: 065
  2. IRINOTECAN [Suspect]
     Active Substance: IRINOTECAN
     Indication: Metastases to lung
  3. IRINOTECAN [Suspect]
     Active Substance: IRINOTECAN
     Indication: Metastases to liver
  4. DOXORUBICIN [Suspect]
     Active Substance: DOXORUBICIN
     Indication: Metastases to lymph nodes
     Dosage: UNK
     Route: 065
  5. DOXORUBICIN [Suspect]
     Active Substance: DOXORUBICIN
     Indication: Metastases to lung
  6. DOXORUBICIN [Suspect]
     Active Substance: DOXORUBICIN
     Indication: Metastases to liver
  7. IFOSFAMIDE [Suspect]
     Active Substance: IFOSFAMIDE
     Indication: Metastases to lymph nodes
     Dosage: UNK
     Route: 065
  8. IFOSFAMIDE [Suspect]
     Active Substance: IFOSFAMIDE
     Indication: Metastases to lung
  9. IFOSFAMIDE [Suspect]
     Active Substance: IFOSFAMIDE
     Indication: Metastases to liver
  10. ETOPOSIDE [Suspect]
     Active Substance: ETOPOSIDE
     Indication: Metastases to lymph nodes
     Dosage: UNK
     Route: 065
  11. ETOPOSIDE [Suspect]
     Active Substance: ETOPOSIDE
     Indication: Metastases to lung
  12. ETOPOSIDE [Suspect]
     Active Substance: ETOPOSIDE
     Indication: Metastases to liver
  13. VINCRISTINE [Suspect]
     Active Substance: VINCRISTINE
     Indication: Metastases to lymph nodes
     Dosage: UNK
     Route: 065
  14. VINCRISTINE [Suspect]
     Active Substance: VINCRISTINE
     Indication: Metastases to lung
  15. VINCRISTINE [Suspect]
     Active Substance: VINCRISTINE
     Indication: Metastases to liver
  16. CYCLOPHOSPHAMIDE [Suspect]
     Active Substance: CYCLOPHOSPHAMIDE
     Indication: Metastases to lymph nodes
     Dosage: UNK
     Route: 065
  17. CYCLOPHOSPHAMIDE [Suspect]
     Active Substance: CYCLOPHOSPHAMIDE
     Indication: Metastases to lung
  18. CYCLOPHOSPHAMIDE [Suspect]
     Active Substance: CYCLOPHOSPHAMIDE
     Indication: Metastases to liver
  19. TRABECTEDIN [Suspect]
     Active Substance: TRABECTEDIN
     Indication: Metastases to lymph nodes
     Route: 065
  20. TRABECTEDIN [Suspect]
     Active Substance: TRABECTEDIN
     Indication: Metastases to lung
  21. TRABECTEDIN [Suspect]
     Active Substance: TRABECTEDIN
     Indication: Metastases to liver
  22. ONDANSETRON [Concomitant]
     Active Substance: ONDANSETRON
     Indication: Prophylaxis
     Dosage: UNK
     Route: 065
  23. CEFIXIME [Concomitant]
     Active Substance: CEFIXIME
     Indication: Prophylaxis
     Dosage: 400 MILLIGRAM

REACTIONS (2)
  - Disease progression [Unknown]
  - Therapy partial responder [Unknown]
